FAERS Safety Report 5110350-1 (Version None)
Quarter: 2006Q3

REPORT INFORMATION
  Report Type: 
  Country: None (occurrence: None)
  Receive Date: 20060921
  Receipt Date: 20060913
  Transmission Date: 20061208
  Serious: Yes (Hospitalization, Other)
  Sender: FDA-Public Use
  Company Number: JP-MERCK-0609USA03106

PATIENT
  Age: 40 Year
  Sex: Male

DRUGS (1)
  1. PRIMAXIN [Suspect]
     Indication: SEPSIS
     Route: 042
     Dates: start: 20060829, end: 20060829

REACTIONS (3)
  - CONVULSION [None]
  - RENAL FAILURE [None]
  - RESTLESSNESS [None]
